FAERS Safety Report 5008232-9 (Version None)
Quarter: 2006Q2

REPORT INFORMATION
  Report Type: 
  Country: None (occurrence: None)
  Receive Date: 20060523
  Receipt Date: 20060512
  Transmission Date: 20061013
  Serious: Yes (Disabling, Other)
  Sender: FDA-Public Use
  Company Number: NSADSS2001022801

PATIENT
  Sex: Female
  Weight: 63 kg

DRUGS (7)
  1. REMICADE [Suspect]
     Route: 041
     Dates: start: 20010315
  2. REMICADE [Suspect]
     Route: 041
     Dates: start: 20010315
  3. REMICADE [Suspect]
     Indication: RHEUMATOID ARTHRITIS
     Route: 041
     Dates: start: 20010315
  4. PREDNISOLONE [Concomitant]
     Route: 048
  5. SEROXAT [Concomitant]
     Route: 048
  6. VIOXX [Concomitant]
     Route: 048
  7. CALCICHEW [Concomitant]
     Route: 048

REACTIONS (2)
  - BLINDNESS [None]
  - ENDOPHTHALMITIS [None]
